FAERS Safety Report 9440150 (Version 2)
Quarter: 2013Q4

REPORT INFORMATION
  Report Type: Spontaneous
  Country: DE (occurrence: DE)
  Receive Date: 20130805
  Receipt Date: 20131206
  Transmission Date: 20140711
  Serious: Yes (Other)
  Sender: FDA-Public Use
  Company Number: DE-BAYER-2013-092452

PATIENT
  Age: 29 Year
  Sex: Female
  Weight: 42 kg

DRUGS (2)
  1. REGORAFENIB [Suspect]
     Indication: COLON CANCER
     Dosage: 120MG DAILY
     Dates: start: 20130424
  2. REGORAFENIB [Suspect]
     Indication: COLON CANCER
     Dosage: 120MG DAILY
     Dates: end: 20130711

REACTIONS (3)
  - Inflammation [None]
  - Pyrexia [None]
  - White blood cell count increased [None]
